FAERS Safety Report 4276222-X (Version None)
Quarter: 2004Q1

REPORT INFORMATION
  Report Type: 
  Country: None (occurrence: None)
  Receive Date: 20040121
  Receipt Date: 20030619
  Transmission Date: 20041129
  Serious: No
  Sender: FDA-Public Use
  Company Number: US-GLAXOSMITHKLINE-A0413294A

PATIENT
  Age: 43 Year
  Sex: Female

DRUGS (3)
  1. ZIAGEN [Suspect]
     Indication: HIV INFECTION
     Dosage: 300MG TWICE PER DAY
     Route: 048
     Dates: start: 20020201
  2. ZERIT [Concomitant]
     Indication: HIV INFECTION
  3. SUSTIVA [Concomitant]
     Indication: HIV INFECTION

REACTIONS (1)
  - ERYTHEMA [None]
